FAERS Safety Report 5187906-3 (Version None)
Quarter: 2006Q4

REPORT INFORMATION
  Report Type: 
  Country: None (occurrence: None)
  Receive Date: 20061221
  Receipt Date: 20061211
  Transmission Date: 20070319
  Serious: Yes (Other)
  Sender: FDA-Public Use
  Company Number: PHBS2006NL19266

PATIENT
  Age: 54 Year
  Sex: Female
  Weight: 68 kg

DRUGS (5)
  1. LEPONEX [Suspect]
     Indication: PSYCHOTIC DISORDER
     Dosage: 25 MG/D
     Route: 048
     Dates: start: 20030904
  2. HALDOL [Suspect]
     Dosage: 1 DF/3 WEEKS
     Route: 065
  3. RISPERDAL [Suspect]
     Dosage: 2 MG, QD
     Route: 048
     Dates: start: 20050215
  4. SEROQUEL [Suspect]
     Dosage: 25 MG, QD
     Route: 048
     Dates: start: 20040101
  5. ZYPREXA [Suspect]
     Dosage: 10 MG, QD
     Route: 048
     Dates: start: 20060104

REACTIONS (24)
  - AKATHISIA [None]
  - APNOEA [None]
  - CHILLS [None]
  - DISCOMFORT [None]
  - DRUG DEPENDENCE [None]
  - EATING DISORDER [None]
  - EPILEPSY [None]
  - EYE DISORDER [None]
  - FACIAL PALSY [None]
  - FALL [None]
  - HEMIPLEGIA [None]
  - HEPATOTOXICITY [None]
  - HYPERVENTILATION [None]
  - HYPOAESTHESIA [None]
  - MUSCULOSKELETAL PAIN [None]
  - NAUSEA [None]
  - NERVOUS SYSTEM DISORDER [None]
  - PANIC DISORDER [None]
  - PARALYSIS [None]
  - PARKINSONISM [None]
  - SENSORY LOSS [None]
  - TACHYCARDIA [None]
  - TONGUE PARALYSIS [None]
  - TREMOR [None]
